FAERS Safety Report 5301961-9 (Version None)
Quarter: 2007Q2

REPORT INFORMATION
  Report Type: 
  Country: None (occurrence: None)
  Receive Date: 20070419
  Receipt Date: 20070417
  Transmission Date: 20071010
  Serious: Yes (Hospitalization)
  Sender: FDA-Public Use
  Company Number: JP-SP-2007-00752

PATIENT
  Age: 69 Year
  Sex: Male

DRUGS (7)
  1. IMMUCYST [Suspect]
     Indication: BLADDER CANCER
     Route: 043
     Dates: start: 20070110, end: 20070207
  2. ETIZOLAM [Concomitant]
     Dates: start: 20061221
  3. AMLODIPINE BESYLATE [Concomitant]
     Dates: start: 20061219
  4. CANDESARTAN CILEXETIL [Concomitant]
     Dates: start: 20070109
  5. ATORVASTATIN CALCIUM [Concomitant]
     Dates: start: 20070109
  6. SPHERICAL ABSORBENT COAL [Concomitant]
     Dates: start: 20070109
  7. ALLOPURINOL [Concomitant]
     Dates: start: 20070109

REACTIONS (5)
  - ARTHRALGIA [None]
  - ARTHRITIS [None]
  - NECK PAIN [None]
  - PYREXIA [None]
  - REITER'S SYNDROME [None]
